FAERS Safety Report 6527728-1 (Version None)
Quarter: 2010Q1

REPORT INFORMATION
  Report Type: 
  Country: None (occurrence: None)
  Receive Date: 20100106
  Receipt Date: 20091229
  Transmission Date: 20100710
  Serious: Yes (Other)
  Sender: FDA-Public Use
  Company Number: US-BIOGENIDEC-2009BI038204

PATIENT
  Age: 45 Year
  Sex: Female
  Weight: 77 kg

DRUGS (4)
  1. AVONEX [Suspect]
     Indication: MULTIPLE SCLEROSIS
     Route: 030
     Dates: start: 19960715
  2. AVONEX [Suspect]
     Route: 030
  3. AVONEX [Suspect]
     Route: 030
     Dates: end: 20071125
  4. AVONEX [Suspect]
     Route: 030
     Dates: start: 20090701

REACTIONS (2)
  - BASAL CELL CARCINOMA [None]
  - SKIN MASS [None]
